FAERS Safety Report 4406091-6 (Version None)
Quarter: 2004Q3

REPORT INFORMATION
  Report Type: 
  Country: None (occurrence: None)
  Receive Date: 20040722
  Receipt Date: 20040709
  Transmission Date: 20050211
  Serious: Yes (Hospitalization)
  Sender: FDA-Public Use
  Company Number: 2004UW10112

PATIENT
  Age: 44 Year
  Sex: Female

DRUGS (4)
  1. CRESTOR [Suspect]
     Indication: HYPERLIPIDAEMIA
     Dosage: 10 MG PO
     Route: 048
     Dates: start: 20040201, end: 20040301
  2. ZYRTEC [Concomitant]
  3. ZOLOFT [Concomitant]
  4. PREMARIN [Concomitant]

REACTIONS (8)
  - ANOREXIA [None]
  - AUTOIMMUNE HEPATITIS [None]
  - DRUG TOXICITY [None]
  - EPSTEIN-BARR VIRUS INFECTION [None]
  - FEELING ABNORMAL [None]
  - HEPATIC SIDEROSIS [None]
  - INFLUENZA LIKE ILLNESS [None]
  - PLEURAL FIBROSIS [None]
